FAERS Safety Report 7801884-7 (Version None)
Quarter: 2011Q4

REPORT INFORMATION
  Report Type: 
  Country: None (occurrence: None)
  Receive Date: 20111007
  Receipt Date: 20111004
  Transmission Date: 20120403
  Serious: Yes (Hospitalization, Congenital Anomaly, Other)
  Sender: FDA-Public Use
  Company Number: US-PFIZER INC-2011199272

PATIENT
  Sex: Female

DRUGS (1)
  1. ZOLOFT [Suspect]
     Route: 064

REACTIONS (11)
  - VENTRICULAR SEPTAL DEFECT [None]
  - PATENT DUCTUS ARTERIOSUS [None]
  - RIGHT VENTRICLE OUTFLOW TRACT OBSTRUCTION [None]
  - THYMUS DISORDER [None]
  - CONGENITAL PULMONARY ARTERY ANOMALY [None]
  - AORTIC VALVE INCOMPETENCE [None]
  - ENDOCARDIAL FIBROSIS [None]
  - CARDIOMEGALY [None]
  - MATERNAL EXPOSURE DURING PREGNANCY [None]
  - ATRIAL SEPTAL DEFECT [None]
  - CARDIAC MYXOMA [None]
